FAERS Safety Report 8813687 (Version 1)
Quarter: 2012Q4

REPORT INFORMATION
  Report Type: 
  Country: US (occurrence: US)
  Receive Date: 20120928
  Receipt Date: 20120928
  Transmission Date: 20130627
  Serious: Yes (Other)
  Sender: FDA-Public Use
  Company Number: US-009507513-1209USA008869

PATIENT
  Sex: Female

DRUGS (3)
  1. VICTRELIS [Suspect]
     Indication: HEPATITIS C
     Dosage: UNK
     Dates: start: 20120813
  2. REBETOL [Suspect]
     Indication: HEPATITIS C
     Dosage: dose decreased from 800 mg to 400 mg
     Dates: start: 20120716
  3. PEGASYS [Suspect]
     Indication: HEPATITIS C
     Dosage: UNK
     Dates: start: 20120716

REACTIONS (4)
  - Haemoglobin decreased [Unknown]
  - Oral discomfort [Unknown]
  - Headache [Unknown]
  - Dysgeusia [Unknown]
